FAERS Safety Report 13745953 (Version 1)
Quarter: 2017Q3

REPORT INFORMATION
  Report Type: Spontaneous
  Country: PE (occurrence: PE)
  Receive Date: 20170712
  Receipt Date: 20170712
  Transmission Date: 20171127
  Serious: Yes (Disabling)
  Sender: FDA-Public Use
  Company Number: PE-GLAXOSMITHKLINE-PE2017GSK104723

PATIENT
  Sex: Male

DRUGS (1)
  1. INDOXYL GEL (BENZOYL PEROXIDE CLINDAMYCIN) [Suspect]
     Active Substance: BENZOYL PEROXIDE\CLINDAMYCIN PHOSPHATE
     Indication: ACNE
     Dosage: 1 UNK, QD
     Route: 061
     Dates: start: 20170522

REACTIONS (3)
  - Pain [Unknown]
  - Lower limb fracture [Not Recovered/Not Resolved]
  - Movement disorder [Not Recovered/Not Resolved]
